FAERS Safety Report 13154270 (Version 1)
Quarter: 2017Q1

REPORT INFORMATION
  Report Type: Spontaneous
  Country: US (occurrence: US)
  Receive Date: 20170126
  Receipt Date: 20170126
  Transmission Date: 20170428
  Serious: No
  Sender: FDA-Public Use
  Company Number: US-AMGEN-USASP2016129871

PATIENT

DRUGS (1)
  1. KYPROLIS [Suspect]
     Active Substance: CARFILZOMIB
     Indication: PLASMA CELL MYELOMA
     Dosage: UNK
     Route: 065
     Dates: start: 201303

REACTIONS (5)
  - Local swelling [Unknown]
  - Eye swelling [Unknown]
  - Erythema [Unknown]
  - Ocular hyperaemia [Unknown]
  - Respiratory symptom [Recovered/Resolved]

NARRATIVE: CASE EVENT DATE: 2013
